FAERS Safety Report 7591711-8 (Version None)
Quarter: 2011Q2

REPORT INFORMATION
  Report Type: 
  Country: None (occurrence: None)
  Receive Date: 20110627
  Receipt Date: 20110614
  Transmission Date: 20111010
  Serious: Yes (Other)
  Sender: FDA-Public Use
  Company Number: FK201101206

PATIENT
  Age: 11 Year
  Sex: Male

DRUGS (3)
  1. CYTARABINE [Suspect]
     Indication: ACUTE LYMPHOCYTIC LEUKAEMIA
     Dosage: INTRATHECAL
     Route: 039
  2. METHOTREXATE [Suspect]
     Indication: ACUTE LYMPHOCYTIC LEUKAEMIA
     Dosage: 5000 MG/M2, PER 24 HR, INTRATHECAL, INTRAVENOUS
     Route: 039
  3. PREDNISONE [Suspect]
     Indication: ACUTE LYMPHOCYTIC LEUKAEMIA
     Dosage: INTRATHECAL
     Route: 039

REACTIONS (7)
  - BLOOD PRESSURE INCREASED [None]
  - POSTERIOR REVERSIBLE ENCEPHALOPATHY SYNDROME [None]
  - HEADACHE [None]
  - SOMNOLENCE [None]
  - DISORIENTATION [None]
  - FLAT AFFECT [None]
  - GRAND MAL CONVULSION [None]
